FAERS Safety Report 4808446-4 (Version None)
Quarter: 2005Q4

REPORT INFORMATION
  Report Type: 
  Country: None (occurrence: None)
  Receive Date: 20051025
  Receipt Date: 20050523
  Transmission Date: 20060501
  Serious: Yes (Death, Other)
  Sender: FDA-Public Use
  Company Number: GBWYE689624MAY05

PATIENT
  Sex: Male
  Weight: 66.5 kg

DRUGS (3)
  1. ENBREL [Suspect]
     Indication: ANKYLOSING SPONDYLITIS
     Route: 058
     Dates: start: 20020529, end: 20041204
  2. SULFASALAZINE [Concomitant]
     Dates: start: 19950101
  3. INDOMETHACIN [Concomitant]
     Dates: start: 19901203

REACTIONS (6)
  - ACUTE MYOCARDIAL INFARCTION [None]
  - CARDIAC ARREST [None]
  - CARDIAC FAILURE [None]
  - CORONARY ARTERY DISEASE [None]
  - PLEURAL DISORDER [None]
  - PULMONARY FIBROSIS [None]
